FAERS Safety Report 19938913 (Version 2)
Quarter: 2021Q4

REPORT INFORMATION
  Report Type: Spontaneous
  Country: US (occurrence: US)
  Receive Date: 20211011
  Receipt Date: 20211103
  Transmission Date: 20220303
  Serious: No
  Sender: FDA-Public Use
  Company Number: US-BAYER-2021A226302

PATIENT
  Age: 29 Year
  Sex: Female

DRUGS (6)
  1. MIRENA [Suspect]
     Active Substance: LEVONORGESTREL
     Indication: Contraception
     Dosage: 20?G/DAY
     Route: 015
     Dates: start: 20210527, end: 2021
  2. NORETHINDRONE ACETATE [Concomitant]
     Active Substance: NORETHINDRONE ACETATE
  3. MEDROXYPROGESTERONE ACETATE [Concomitant]
     Active Substance: MEDROXYPROGESTERONE ACETATE
  4. CLEOCIN S [Concomitant]
  5. METHERGINE [Concomitant]
     Active Substance: METHYLERGONOVINE MALEATE
  6. CEPHALEXIN [Concomitant]
     Active Substance: CEPHALEXIN

REACTIONS (2)
  - Device expulsion [Recovered/Resolved]
  - Device issue [None]

NARRATIVE: CASE EVENT DATE: 20210101
